FAERS Safety Report 20606120 (Version 9)
Quarter: 2022Q3

REPORT INFORMATION
  Report Type: Report from Study
  Country: DE (occurrence: DE)
  Receive Date: 20220317
  Receipt Date: 20220726
  Transmission Date: 20221026
  Serious: Yes (Hospitalization, Other)
  Sender: FDA-Public Use
  Company Number: DE-NOVARTISPH-NVSC2022DE055207

PATIENT
  Age: 49 Year
  Sex: Female
  Weight: 55 kg

DRUGS (3)
  1. RIBOCICLIB [Suspect]
     Active Substance: RIBOCICLIB
     Indication: HER2 positive breast cancer
     Dosage: 400 MG
     Route: 048
     Dates: start: 20211126, end: 20220210
  2. LETROZOLE [Suspect]
     Active Substance: LETROZOLE
     Indication: HER2 positive breast cancer
     Dosage: 2.5 MG, QD (1-0-0)
     Route: 048
     Dates: start: 20210907, end: 20220218
  3. GOSERELIN [Suspect]
     Active Substance: GOSERELIN
     Indication: HER2 positive breast cancer
     Dosage: UNK, Q4W
     Route: 065
     Dates: start: 20210910, end: 20220218

REACTIONS (1)
  - Hepatitis acute [Recovered/Resolved with Sequelae]

NARRATIVE: CASE EVENT DATE: 20220226
